FAERS Safety Report 14955433 (Version 2)
Quarter: 2018Q3

REPORT INFORMATION
  Report Type: Spontaneous
  Country: US (occurrence: US)
  Receive Date: 20180531
  Receipt Date: 20180706
  Transmission Date: 20181010
  Serious: Yes (Hospitalization)
  Sender: FDA-Public Use
  Company Number: US-BIOGEN-2005BI008919

PATIENT
  Age: 54 Year
  Sex: Female

DRUGS (4)
  1. AVONEX [Suspect]
     Active Substance: INTERFERON BETA-1A
     Route: 030
     Dates: start: 20030828, end: 200801
  2. AVONEX [Suspect]
     Active Substance: INTERFERON BETA-1A
     Route: 030
     Dates: start: 200810
  3. AVONEX [Suspect]
     Active Substance: INTERFERON BETA-1A
     Route: 030
  4. AVONEX [Suspect]
     Active Substance: INTERFERON BETA-1A
     Indication: MULTIPLE SCLEROSIS
     Route: 030
     Dates: start: 19961008, end: 20030821

REACTIONS (6)
  - Neurogenic bladder [Not Recovered/Not Resolved]
  - Knee arthroplasty [Unknown]
  - Hip arthroplasty [Unknown]
  - Shoulder arthroplasty [Unknown]
  - Osteonecrosis [Recovered/Resolved]
  - Urinary tract infection [Recovered/Resolved]

NARRATIVE: CASE EVENT DATE: 2005
